FAERS Safety Report 7238436-6 (Version None)
Quarter: 2011Q1

REPORT INFORMATION
  Report Type: 
  Country: None (occurrence: None)
  Receive Date: 20110121
  Receipt Date: 20110112
  Transmission Date: 20110831
  Serious: Yes (Hospitalization, Disabling, Other)
  Sender: FDA-Public Use
  Company Number: US-MERCK-0805USA00890

PATIENT
  Age: 76 Year
  Sex: Female
  Weight: 72 kg

DRUGS (2)
  1. FOSAMAX [Suspect]
     Route: 048
     Dates: start: 20020801, end: 20060101
  2. FOSAMAX [Suspect]
     Indication: OSTEOPOROSIS
     Route: 048
     Dates: start: 19990329, end: 20020101

REACTIONS (27)
  - OSTEOMYELITIS [None]
  - ARTHROPATHY [None]
  - CERVICAL SPINAL STENOSIS [None]
  - GASTROINTESTINAL NEOPLASM [None]
  - ADVERSE EVENT [None]
  - RENAL CYST [None]
  - DENTAL CARIES [None]
  - FISTULA [None]
  - DEPRESSION [None]
  - BONE DISORDER [None]
  - LACUNAR INFARCTION [None]
  - CHOLELITHIASIS [None]
  - INTERVERTEBRAL DISC DEGENERATION [None]
  - CARDIO-RESPIRATORY ARREST [None]
  - GINGIVITIS [None]
  - PUBIS FRACTURE [None]
  - CEREBRAL ATROPHY [None]
  - ROTATOR CUFF SYNDROME [None]
  - BONE DENSITY DECREASED [None]
  - AMNESIA [None]
  - SPINAL DISORDER [None]
  - OSTEONECROSIS OF JAW [None]
  - PERIODONTITIS [None]
  - CEREBRAL ISCHAEMIA [None]
  - OSTEOPENIA [None]
  - LOOSE TOOTH [None]
  - CATARACT [None]
